FAERS Safety Report 15585859 (Version 1)
Quarter: 2018Q4

REPORT INFORMATION
  Report Type: Spontaneous
  Country: MX (occurrence: MX)
  Receive Date: 20181105
  Receipt Date: 20181105
  Transmission Date: 20190205
  Serious: Yes (Hospitalization, Other)
  Sender: FDA-Public Use
  Company Number: MX-PFIZER INC-2018447573

PATIENT
  Age: 67 Year
  Sex: Female

DRUGS (8)
  1. FLUOXETINE [Concomitant]
     Active Substance: FLUOXETINE HYDROCHLORIDE
     Indication: DEPRESSION
     Dosage: 20 MG, UNK
     Dates: start: 2013
  2. ENTRESTO [Concomitant]
     Active Substance: SACUBITRIL\VALSARTAN
     Indication: ARRHYTHMIA
     Dosage: 50 MG, UNK
     Dates: start: 20170715
  3. ATORVASTATINE [ATORVASTATIN] [Concomitant]
     Indication: CARDIOVASCULAR DISORDER
     Dosage: 100 MG, UNK
     Dates: start: 2015
  4. CORDARONE [Suspect]
     Active Substance: AMIODARONE HYDROCHLORIDE
     Indication: ARRHYTHMIA
     Dosage: 1 DF, DAILY
     Route: 048
     Dates: start: 201707
  5. ELIQUIS [Concomitant]
     Active Substance: APIXABAN
     Indication: SEIZURE
     Dosage: UNK
     Dates: start: 20170710
  6. METOPROLOL. [Concomitant]
     Active Substance: METOPROLOL
     Indication: CARDIAC DISORDER
     Dosage: 100 MG, UNK
     Dates: start: 201707
  7. EUTIROX [Concomitant]
     Active Substance: LEVOTHYROXINE SODIUM
     Indication: THYROID CANCER
     Dosage: 75 MG, UNK
     Dates: start: 2000
  8. LEVETIRACETAM. [Concomitant]
     Active Substance: LEVETIRACETAM
     Indication: SEIZURE
     Dosage: 500 MG, UNK
     Dates: start: 201703

REACTIONS (2)
  - Underweight [Recovered/Resolved]
  - Cardiac disorder [Unknown]

NARRATIVE: CASE EVENT DATE: 20180710
